FAERS Safety Report 7065668-2 (Version None)
Quarter: 2010Q4

REPORT INFORMATION
  Report Type: 
  Country: None (occurrence: None)
  Receive Date: 20101027
  Receipt Date: 20101001
  Transmission Date: 20110411
  Serious: Yes (Hospitalization, Other)
  Sender: FDA-Public Use
  Company Number: PHEH2009US04183

PATIENT
  Sex: Female

DRUGS (16)
  1. AREDIA [Suspect]
     Indication: OSTEOPOROSIS
     Dosage: MONTHLY
     Dates: start: 20000417, end: 20060915
  2. AREDIA [Suspect]
     Indication: OSTEITIS DEFORMANS
     Dosage: EVERY 3 MONLTHS
  3. AREDIA [Suspect]
     Indication: METASTASES TO BONE
  4. FOSAMAX [Suspect]
     Indication: OSTEOPOROSIS
  5. FOSAMAX [Suspect]
     Indication: OSTEITIS DEFORMANS
  6. ZOMETA [Suspect]
  7. TYLOX [Concomitant]
  8. ZOLOFT [Concomitant]
  9. SYNTHROID [Concomitant]
  10. MAVIK [Concomitant]
  11. PHENERGAN ^AVENTIS PHARMA^ [Concomitant]
  12. OXYCONTIN [Concomitant]
  13. AMBIEN [Concomitant]
  14. LOMOTIL [Concomitant]
  15. AMARYL [Concomitant]
  16. NOLVADEX [Concomitant]

REACTIONS (32)
  - ABDOMINAL PAIN [None]
  - ADRENAL ADENOMA [None]
  - ADRENAL MASS [None]
  - ANHEDONIA [None]
  - ANXIETY [None]
  - BACK PAIN [None]
  - BONE SWELLING [None]
  - CATARACT [None]
  - CELLULITIS [None]
  - CHOLELITHIASIS [None]
  - CONDITION AGGRAVATED [None]
  - CONFUSIONAL STATE [None]
  - DIZZINESS [None]
  - EMOTIONAL DISTRESS [None]
  - FIBULA FRACTURE [None]
  - FOOT FRACTURE [None]
  - HALLUCINATION [None]
  - INFECTION [None]
  - INJURY [None]
  - JAW DISORDER [None]
  - KYPHOSCOLIOSIS [None]
  - MACULAR DEGENERATION [None]
  - NECK PAIN [None]
  - NEPHROLITHIASIS [None]
  - OEDEMA PERIPHERAL [None]
  - OSTEOARTHRITIS [None]
  - OSTEOMYELITIS [None]
  - OSTEONECROSIS OF JAW [None]
  - PAIN [None]
  - PERIPHERAL VASCULAR DISORDER [None]
  - TOOTH LOSS [None]
  - VERTIGO [None]
